FAERS Safety Report 6873143-0 (Version None)
Quarter: 2010Q3

REPORT INFORMATION
  Report Type: 
  Country: None (occurrence: None)
  Receive Date: 20100721
  Receipt Date: 20100706
  Transmission Date: 20110219
  Serious: Yes (Hospitalization)
  Sender: FDA-Public Use
  Company Number: 2010002356

PATIENT
  Sex: Female
  Weight: 92.2 kg

DRUGS (3)
  1. ERLOTINIB HYDROCHLORIDE [Suspect]
     Indication: PANCREATIC CARCINOMA METASTATIC
     Dosage: (100 MG, QD), ORAL
     Route: 048
     Dates: start: 20100518
  2. GEMCITABINE [Suspect]
     Indication: PANCREATIC CARCINOMA METASTATIC
     Dosage: 91000 MG/M2, DAYS 1, 8 AND 15), INTRAVENOUS
     Route: 042
     Dates: start: 20100518
  3. IMC-A12 [Suspect]
     Indication: PANCREATIC CARCINOMA METASTATIC
     Dosage: (6 MG/KG, DAYS 1, 8, 15 AND 22), INTRAVENOUS
     Route: 042
     Dates: start: 20100518

REACTIONS (5)
  - CEREBELLAR INFARCTION [None]
  - CEREBRAL ISCHAEMIA [None]
  - GLUCOSE TOLERANCE IMPAIRED [None]
  - HYPERGLYCAEMIA [None]
  - HYPOCALCAEMIA [None]
